FAERS Safety Report 25411474 (Version 1)
Quarter: 2025Q2

REPORT INFORMATION
  Report Type: Spontaneous
  Country: JP (occurrence: JP)
  Receive Date: 20250609
  Receipt Date: 20250609
  Transmission Date: 20250716
  Serious: Yes (Life-Threatening, Other)
  Sender: NOVARTIS
  Company Number: JP-002147023-NVSJ2025JP006083

PATIENT
  Age: 62 Year
  Sex: Male

DRUGS (1)
  1. IMATINIB [Suspect]
     Active Substance: IMATINIB
     Indication: Gastrointestinal neuroendocrine tumour
     Route: 065

REACTIONS (2)
  - Pneumonia [Recovered/Resolved]
  - Pleural effusion [Recovered/Resolved]
